FAERS Safety Report 10130854 (Version 1)
Quarter: 2014Q2

REPORT INFORMATION
  Report Type: Spontaneous
  Country: US (occurrence: None)
  Receive Date: 20140425
  Receipt Date: 20140425
  Transmission Date: 20141212
  Serious: Yes (Hospitalization)
  Sender: FDA-Public Use
  Company Number: None

PATIENT
  Age: 77 Year
  Sex: Female
  Weight: 43.2 kg

DRUGS (4)
  1. 5-FU (FLUOROURACIL) [Suspect]
  2. IRINOTECAN [Suspect]
  3. LEUCOVORIN CALCIUM [Suspect]
  4. OXALIPATIN [Suspect]

REACTIONS (4)
  - Vomiting [None]
  - Diarrhoea [None]
  - Dehydration [None]
  - Atrial fibrillation [None]
